FAERS Safety Report 5768938-0 (Version None)
Quarter: 2008Q2

REPORT INFORMATION
  Report Type: 
  Country: None (occurrence: None)
  Receive Date: 20080610
  Receipt Date: 20080602
  Transmission Date: 20081010
  Serious: Yes (Life-Threatening)
  Sender: FDA-Public Use
  Company Number: GXKR2008GB05015

PATIENT
  Age: 45 Year
  Sex: Female

DRUGS (3)
  1. WARFARIN SODIUM [Suspect]
  2. NITROFURANTOIN [Suspect]
     Indication: URINARY TRACT INFECTION
     Dosage: 50 MG, ORAL
     Route: 048
     Dates: start: 20080429, end: 20080505
  3. FERROUS SULPHATE (FERROUS SULFATE) [Concomitant]

REACTIONS (2)
  - DRUG INTERACTION [None]
  - INTERNATIONAL NORMALISED RATIO INCREASED [None]
